FAERS Safety Report 8971586 (Version 1)
Quarter: 2012Q4

REPORT INFORMATION
  Report Type: 
  Country: US (occurrence: US)
  Receive Date: 20121211
  Receipt Date: 20121211
  Transmission Date: 20130627
  Serious: No
  Sender: FDA-Public Use
  Company Number: US-PFIZER INC-2012307623

PATIENT
  Sex: Female

DRUGS (2)
  1. EFFEXOR XR [Suspect]
     Indication: MAJOR DEPRESSION
     Dosage: UNK, 1x/day
     Route: 048
  2. FENTANYL [Suspect]
     Indication: PAIN
     Dosage: UNK
     Dates: start: 2012

REACTIONS (6)
  - Hyperhidrosis [Unknown]
  - Chills [Unknown]
  - Gastrointestinal disorder [Unknown]
  - Mood altered [Unknown]
  - Weight decreased [Unknown]
  - Fibromyalgia [Unknown]
